FAERS Safety Report 6890512-3 (Version None)
Quarter: 2010Q3

REPORT INFORMATION
  Report Type: 
  Country: None (occurrence: None)
  Receive Date: 20100731
  Receipt Date: 20081112
  Transmission Date: 20110219
  Serious: No
  Sender: FDA-Public Use
  Company Number: US-PFIZER INC-2008096462

PATIENT
  Sex: Female
  Weight: 60 kg

DRUGS (4)
  1. LIPITOR [Suspect]
     Indication: BLOOD CHOLESTEROL INCREASED
     Dates: start: 20080101, end: 20081001
  2. LEVOXYL [Concomitant]
  3. PRILOSEC [Concomitant]
  4. ZOCOR [Concomitant]

REACTIONS (1)
  - LIVER FUNCTION TEST ABNORMAL [None]
